FAERS Safety Report 19862458 (Version 1)
Quarter: 2021Q3

REPORT INFORMATION
  Report Type: Spontaneous
  Country: US (occurrence: US)
  Receive Date: 20210921
  Receipt Date: 20210921
  Transmission Date: 20211014
  Serious: No
  Sender: FDA-Public Use
  Company Number: US-PFIZER INC-2021299300

PATIENT
  Age: 39 Year
  Sex: Female
  Weight: 83.01 kg

DRUGS (2)
  1. EFFEXOR XR [Suspect]
     Active Substance: VENLAFAXINE HYDROCHLORIDE
     Dosage: 37.5 MG
     Dates: start: 2018
  2. EFFEXOR XR [Suspect]
     Active Substance: VENLAFAXINE HYDROCHLORIDE
     Indication: ANXIETY
     Dosage: 75 MG, 1X/DAY (1 IN MORNING)
     Dates: start: 2019

REACTIONS (1)
  - Urine analysis abnormal [Unknown]

NARRATIVE: CASE EVENT DATE: 20210309
